FAERS Safety Report 4364057-9 (Version None)
Quarter: 2004Q2

REPORT INFORMATION
  Report Type: 
  Country: None (occurrence: None)
  Receive Date: 20040519
  Receipt Date: 20040510
  Transmission Date: 20050107
  Serious: Yes (Hospitalization)
  Sender: FDA-Public Use
  Company Number: GB-JNJFOC-20040501516

PATIENT
  Age: 79 Year
  Sex: Female

DRUGS (4)
  1. REMICADE [Suspect]
     Indication: RHEUMATOID ARTHRITIS
     Dosage: 216 MG, INTRAVENOUS
     Route: 042
     Dates: start: 20030122
  2. METHOTREXATE [Concomitant]
  3. FOLIC ACID [Concomitant]
  4. DO-DYDRAMOL (PARAMOL-118) [Concomitant]

REACTIONS (1)
  - HIP FRACTURE [None]
